FAERS Safety Report 4563097-4 (Version None)
Quarter: 2005Q1

REPORT INFORMATION
  Report Type: 
  Country: None (occurrence: None)
  Receive Date: 20050118
  Receipt Date: 20040714
  Transmission Date: 20050727
  Serious: Yes (Other)
  Sender: FDA-Public Use
  Company Number: HQWYE247720JUL04

PATIENT
  Age: 54 Year
  Sex: Female

DRUGS (3)
  1. PREMPRO [Suspect]
     Indication: HORMONE REPLACEMENT THERAPY
     Dates: start: 19990730, end: 20020818
  2. PREMARIN [Suspect]
     Indication: OESTROGEN REPLACEMENT THERAPY
     Dates: start: 19940506, end: 19990730
  3. PROVERA [Suspect]
     Indication: HORMONE REPLACEMENT THERAPY
     Dates: start: 19940506, end: 19990730

REACTIONS (1)
  - BREAST CANCER [None]
